FAERS Safety Report 7901784-8 (Version None)
Quarter: 2011Q4

REPORT INFORMATION
  Report Type: 
  Country: None (occurrence: None)
  Receive Date: 20111108
  Receipt Date: 20111031
  Transmission Date: 20120403
  Serious: Yes (Other)
  Sender: FDA-Public Use
  Company Number: US-JNJFOC-20111101137

PATIENT
  Age: 80 Year
  Sex: Female

DRUGS (8)
  1. TYLENOL (CAPLET) [Suspect]
     Route: 048
  2. SYNTHROID [Concomitant]
     Indication: THYROID DISORDER
  3. TYLENOL (CAPLET) [Suspect]
     Indication: ARTHRALGIA
     Route: 048
     Dates: start: 20080101
  4. LIPITOR [Concomitant]
     Indication: BLOOD CHOLESTEROL ABNORMAL
  5. VITAMIN C AND D [Concomitant]
     Indication: VITAMIN SUPPLEMENTATION
  6. PLAVIX [Concomitant]
     Indication: CEREBROVASCULAR ACCIDENT
  7. FISH OIL [Concomitant]
  8. MULTI-VITAMINS [Concomitant]
     Indication: VITAMIN SUPPLEMENTATION

REACTIONS (1)
  - CEREBROVASCULAR ACCIDENT [None]
